FAERS Safety Report 18618348 (Version 1)
Quarter: 2020Q4

REPORT INFORMATION
  Report Type: Spontaneous
  Country: US (occurrence: US)
  Receive Date: 20201215
  Receipt Date: 20201215
  Transmission Date: 20210114
  Serious: No
  Sender: FDA-Public Use
  Company Number: US-ROCHE-2733091

PATIENT
  Age: 65 Year
  Sex: Male

DRUGS (1)
  1. OCREVUS [Suspect]
     Active Substance: OCRELIZUMAB
     Indication: MULTIPLE SCLEROSIS
     Dosage: FREQUENCY: 2, INTERVAL: 1 YEARS -ONGOING - YES
     Route: 042

REACTIONS (2)
  - COVID-19 [Not Recovered/Not Resolved]
  - Gait disturbance [Unknown]
